FAERS Safety Report 6794454-3 (Version None)
Quarter: 2010Q2

REPORT INFORMATION
  Report Type: 
  Country: None (occurrence: None)
  Receive Date: 20100625
  Receipt Date: 20100614
  Transmission Date: 20101027
  Serious: Yes (Other)
  Sender: FDA-Public Use
  Company Number: US-BAYER-200943297NA

PATIENT
  Age: 34 Year
  Sex: Female

DRUGS (1)
  1. MIRENA [Suspect]
     Indication: CONTRACEPTION
     Dosage: CONTINUOUS DELIVERY
     Route: 015
     Dates: start: 20091202, end: 20100613

REACTIONS (16)
  - ABDOMINAL DISTENSION [None]
  - ABDOMINAL PAIN [None]
  - ACNE [None]
  - ALOPECIA [None]
  - ANXIETY [None]
  - DEPRESSION [None]
  - DEVICE EXPULSION [None]
  - FATIGUE [None]
  - HEADACHE [None]
  - INSOMNIA [None]
  - INSULIN RESISTANCE [None]
  - MOOD SWINGS [None]
  - PAIN [None]
  - PALPITATIONS [None]
  - POST PROCEDURAL HAEMORRHAGE [None]
  - VAGINAL HAEMORRHAGE [None]
